FAERS Safety Report 10555003 (Version 3)
Quarter: 2014Q4

REPORT INFORMATION
  Report Type: Spontaneous
  Country: CN (occurrence: CN)
  Receive Date: 20141030
  Receipt Date: 20141119
  Transmission Date: 20150529
  Serious: Yes (Hospitalization)
  Sender: FDA-Public Use
  Company Number: CN-JNJFOC-20141012969

PATIENT
  Age: 6 Month
  Sex: Male
  Weight: 8 kg

DRUGS (2)
  1. CEFTRIAXONE SODIUM. [Suspect]
     Active Substance: CEFTRIAXONE SODIUM
     Indication: UPPER RESPIRATORY TRACT INFECTION
     Route: 042
     Dates: start: 20140303, end: 20140310
  2. INFANTS TYLENOL [Suspect]
     Active Substance: ACETAMINOPHEN
     Indication: PYREXIA
     Route: 048
     Dates: start: 20140303, end: 20140306

REACTIONS (5)
  - Product quality issue [None]
  - Liver function test abnormal [Recovering/Resolving]
  - Neutrophil count decreased [None]
  - Lymphocyte count increased [None]
  - Aspartate aminotransferase increased [None]

NARRATIVE: CASE EVENT DATE: 20140331
